FAERS Safety Report 10131655 (Version 1)
Quarter: 2014Q2

REPORT INFORMATION
  Report Type: Spontaneous
  Country: US (occurrence: US)
  Receive Date: 20140428
  Receipt Date: 20140428
  Transmission Date: 20141212
  Serious: Yes (Other)
  Sender: FDA-Public Use
  Company Number: US-PFIZER INC-2014112950

PATIENT
  Sex: Female

DRUGS (2)
  1. LINEZOLID [Suspect]
     Dosage: UNK
  2. CELEXA [Suspect]
     Dosage: UNK

REACTIONS (7)
  - Intentional product misuse [Unknown]
  - Depressed level of consciousness [Unknown]
  - Dysgeusia [Unknown]
  - Dysphagia [Unknown]
  - Grip strength decreased [Unknown]
  - Speech disorder [Unknown]
  - Muscle spasms [Unknown]
